FAERS Safety Report 8623494-4 (Version None)
Quarter: 2012Q3

REPORT INFORMATION
  Report Type: 
  Country: None (occurrence: None)
  Receive Date: 20120824
  Receipt Date: 20120824
  Transmission Date: 20120928
  Serious: Yes (Hospitalization)
  Sender: FDA-Public Use
  Company Number: None

PATIENT
  Sex: Female
  Weight: 73.35 kg

DRUGS (4)
  1. PROZAC [Concomitant]
  2. CRYSELLE [Suspect]
     Indication: CONTRACEPTION
     Dosage: ONE TABLET, DAILY, PO 2 YEARS APPROX
     Route: 048
  3. CRYSELLE [Suspect]
     Indication: ENDOMETRIOSIS
     Dosage: ONE TABLET, DAILY, PO 2 YEARS APPROX
     Route: 048
  4. NAPROXEN [Concomitant]

REACTIONS (4)
  - OEDEMA PERIPHERAL [None]
  - DEEP VEIN THROMBOSIS [None]
  - PAIN IN EXTREMITY [None]
  - ERYTHEMA [None]
